FAERS Safety Report 9098063 (Version 2)
Quarter: 2013Q2

REPORT INFORMATION
  Report Type: Spontaneous
  Country: AU (occurrence: AU)
  Receive Date: 20130213
  Receipt Date: 20130417
  Transmission Date: 20140414
  Serious: Yes (Hospitalization)
  Sender: FDA-Public Use
  Company Number: AU-009507513-1302AUS004560

PATIENT
  Sex: Female

DRUGS (4)
  1. REBETOL [Suspect]
     Dosage: 2 DF, BID
     Route: 048
  2. INTERFERON (UNSPECIFIED) [Suspect]
  3. TELAPREVIR [Suspect]
  4. ORPHENADRINE [Concomitant]

REACTIONS (3)
  - Dehydration [Unknown]
  - Nausea [Unknown]
  - Vomiting [Unknown]
